FAERS Safety Report 8575867-6 (Version None)
Quarter: 2012Q3

REPORT INFORMATION
  Report Type: 
  Country: None (occurrence: None)
  Receive Date: 20120807
  Receipt Date: 20120618
  Transmission Date: 20120928
  Serious: No
  Sender: FDA-Public Use
  Company Number: US-009507513-2012SP033706

PATIENT

DRUGS (3)
  1. VICTRELIS [Suspect]
     Indication: HEPATITIS C
     Dosage: 4 CAPSULES
     Route: 048
     Dates: start: 20120113
  2. PEG-INTRON [Suspect]
     Indication: HEPATITIS C
     Dates: start: 20111001
  3. RIBASPHERE [Suspect]
     Indication: HEPATITIS C
     Dates: start: 20111001

REACTIONS (1)
  - HAEMOGLOBIN DECREASED [None]
